FAERS Safety Report 17830660 (Version 1)
Quarter: 2020Q2

REPORT INFORMATION
  Report Type: Report from Study
  Country: US (occurrence: US)
  Receive Date: 20200527
  Receipt Date: 20200527
  Transmission Date: 20200714
  Serious: Yes (Death)
  Sender: FDA-Public Use
  Company Number: US-EXELIXIS-CABO-20030112

PATIENT
  Sex: Male

DRUGS (16)
  1. ALLOPURINOL. [Concomitant]
     Active Substance: ALLOPURINOL
  2. BREO ELLIPTA [Concomitant]
     Active Substance: FLUTICASONE FUROATE\VILANTEROL TRIFENATATE
  3. BENADRYL ALLERGY [Concomitant]
     Active Substance: DIPHENHYDRAMINE HYDROCHLORIDE
  4. LISINOPRIL. [Concomitant]
     Active Substance: LISINOPRIL
  5. CABOMETYX [Suspect]
     Active Substance: CABOZANTINIB S-MALATE
     Indication: MALIGNANT NEOPLASM OF RENAL PELVIS
     Dosage: 40 MG, QD
     Route: 048
     Dates: start: 20171227
  6. ALFUZOSIN HCL [Concomitant]
     Active Substance: ALFUZOSIN HYDROCHLORIDE
  7. FINASTERIDE. [Concomitant]
     Active Substance: FINASTERIDE
  8. FUROSEMIDE. [Concomitant]
     Active Substance: FUROSEMIDE
  9. MONTELUKAST [Concomitant]
     Active Substance: MONTELUKAST SODIUM
  10. PROAIR HFA [Concomitant]
     Active Substance: ALBUTEROL SULFATE
  11. ELIQUIS [Concomitant]
     Active Substance: APIXABAN
  12. SYNTHROID [Concomitant]
     Active Substance: LEVOTHYROXINE SODIUM
  13. PROCHLORPERAZINE. [Concomitant]
     Active Substance: PROCHLORPERAZINE
  14. SUCRALFATE. [Concomitant]
     Active Substance: SUCRALFATE
  15. NIFEDIPINE. [Concomitant]
     Active Substance: NIFEDIPINE
  16. SENOKOT [Concomitant]
     Active Substance: SENNOSIDES

REACTIONS (2)
  - Death [Fatal]
  - Off label use [Unknown]
